FAERS Safety Report 9701754 (Version 3)
Quarter: 2013Q4

REPORT INFORMATION
  Report Type: Spontaneous
  Country: US (occurrence: US)
  Receive Date: 20131121
  Receipt Date: 20131223
  Transmission Date: 20140711
  Serious: Yes (Hospitalization, Other)
  Sender: FDA-Public Use
  Company Number: US-PFIZER INC-2013330374

PATIENT
  Age: 39 Year
  Sex: Female
  Weight: 47.62 kg

DRUGS (6)
  1. CHANTIX [Suspect]
     Indication: SMOKING CESSATION THERAPY
     Dosage: 0.5 MG, ONCE A DAY
     Route: 048
     Dates: start: 201303, end: 2013
  2. CHANTIX [Suspect]
     Dosage: UNK
     Route: 048
     Dates: start: 2013, end: 2013
  3. CHANTIX [Suspect]
     Dosage: UNK
     Route: 048
     Dates: start: 201310, end: 201310
  4. LORTAB [Concomitant]
     Dosage: UNK
     Dates: start: 2006
  5. SYNTHROID [Concomitant]
     Dosage: UNK
     Dates: start: 2006
  6. SOMA [Concomitant]
     Dosage: UNK
     Dates: start: 2006

REACTIONS (24)
  - Suicide attempt [Unknown]
  - Self injurious behaviour [Unknown]
  - Suicidal ideation [Unknown]
  - Depression [Unknown]
  - Homicidal ideation [Unknown]
  - Hallucination [Unknown]
  - Memory impairment [Unknown]
  - Fear [Unknown]
  - Abnormal behaviour [Unknown]
  - Insomnia [Unknown]
  - Limb injury [Unknown]
  - Abasia [Unknown]
  - Discomfort [Unknown]
  - Paramnesia [Unknown]
  - Pain [Unknown]
  - Daydreaming [Unknown]
  - Drug intolerance [Unknown]
  - Arthralgia [Unknown]
  - Irritability [Unknown]
  - Pain in extremity [Unknown]
  - Heart rate increased [Unknown]
  - Blood pressure increased [Unknown]
  - Dysgraphia [Unknown]
  - Abnormal dreams [Unknown]
